FAERS Safety Report 6657255-2 (Version None)
Quarter: 2010Q1

REPORT INFORMATION
  Report Type: 
  Country: None (occurrence: None)
  Receive Date: 20100325
  Receipt Date: 20100318
  Transmission Date: 20100710
  Serious: Yes (Hospitalization)
  Sender: FDA-Public Use
  Company Number: 2010SP014569

PATIENT
  Age: 53 Year
  Sex: Female
  Weight: 68.2664 kg

DRUGS (7)
  1. PEG-INTRON [Suspect]
     Indication: HEPATITIS C
     Dosage: 120 MCG;QW;SC
     Route: 058
     Dates: start: 20100209, end: 20100308
  2. RIBAVIRIN [Suspect]
     Indication: HEPATITIS C
     Dosage: 1000 MG;QD;PO
     Route: 048
     Dates: start: 20100209, end: 20100302
  3. METOPROLOL (CON.) [Concomitant]
  4. STROVITE (CON.) [Concomitant]
  5. LIPITOR (CON.) [Concomitant]
  6. SYNTHROID (CON.) [Concomitant]
  7. ACIPHEX (CON.) [Concomitant]

REACTIONS (4)
  - ANAEMIA [None]
  - GASTROINTESTINAL HAEMORRHAGE [None]
  - NAUSEA [None]
  - ULCER [None]
